FAERS Safety Report 16326479 (Version 1)
Quarter: 2019Q2

REPORT INFORMATION
  Report Type: Spontaneous
  Country: US (occurrence: US)
  Receive Date: 20190517
  Receipt Date: 20190517
  Transmission Date: 20190711
  Serious: Yes (Hospitalization)
  Sender: FDA-Public Use
  Company Number: US-SYNEX-T201903729

PATIENT

DRUGS (1)
  1. INOMAX [Suspect]
     Active Substance: NITRIC OXIDE
     Indication: HYPOXIA
     Dosage: UNK, INHALATIONAL
     Route: 050

REACTIONS (2)
  - Anaemia [Recovered/Resolved]
  - Therapeutic product effect incomplete [Unknown]
